FAERS Safety Report 16342118 (Version 1)
Quarter: 2019Q2

REPORT INFORMATION
  Report Type: Report from Study
  Country: None (occurrence: US)
  Receive Date: 20190522
  Receipt Date: 20190522
  Transmission Date: 20190711
  Serious: Yes (Hospitalization, Other)
  Sender: FDA-Public Use
  Company Number: US-ABBVIE-18K-163-2477971-00

PATIENT
  Age: 28 Year
  Sex: Female
  Weight: 68.1 kg

DRUGS (7)
  1. COLACE [Concomitant]
     Active Substance: DOCUSATE SODIUM
     Indication: PRODUCT USED FOR UNKNOWN INDICATION
  2. TYLENOL [Concomitant]
     Active Substance: ACETAMINOPHEN
     Indication: PRODUCT USED FOR UNKNOWN INDICATION
  3. HUMIRA [Suspect]
     Active Substance: ADALIMUMAB
     Indication: PSORIATIC ARTHROPATHY
     Route: 058
     Dates: start: 201810
  4. METFORMIN [Concomitant]
     Active Substance: METFORMIN HYDROCHLORIDE
     Indication: PRODUCT USED FOR UNKNOWN INDICATION
  5. HUMIRA [Suspect]
     Active Substance: ADALIMUMAB
     Indication: PSORIASIS
     Route: 058
     Dates: start: 2010, end: 201802
  6. LINZESS [Concomitant]
     Active Substance: LINACLOTIDE
     Indication: PRODUCT USED FOR UNKNOWN INDICATION
  7. PRENATAL VITAMINS [Concomitant]
     Active Substance: VITAMINS
     Indication: PRODUCT USED FOR UNKNOWN INDICATION

REACTIONS (12)
  - Gestational diabetes [Recovered/Resolved]
  - Sinusitis [Recovered/Resolved]
  - Perinatal depression [Not Recovered/Not Resolved]
  - Normal newborn [Unknown]
  - Tendon injury [Recovering/Resolving]
  - Pruritus [Recovered/Resolved]
  - Cholestasis of pregnancy [Recovered/Resolved]
  - Endometriosis [Not Recovered/Not Resolved]
  - Weight decreased [Recovered/Resolved]
  - Exposure during pregnancy [Unknown]
  - Hepatic enzyme increased [Recovered/Resolved]
  - Hyperemesis gravidarum [Recovered/Resolved]

NARRATIVE: CASE EVENT DATE: 2016
